FAERS Safety Report 12799660 (Version 1)
Quarter: 2016Q3

REPORT INFORMATION
  Report Type: Spontaneous
  Country: US (occurrence: US)
  Receive Date: 20160930
  Receipt Date: 20160930
  Transmission Date: 20161109
  Serious: Yes (Other)
  Sender: FDA-Public Use
  Company Number: US-TEVA-697583USA

PATIENT
  Age: 55 Year
  Sex: Female

DRUGS (1)
  1. HYDROCODONE BITARTRATE AND ACETAMINOPHEN [Suspect]
     Active Substance: ACETAMINOPHEN\HYDROCODONE BITARTRATE
     Indication: BACK PAIN
     Dosage: 10/325MG

REACTIONS (8)
  - Nausea [Not Recovered/Not Resolved]
  - Palpitations [Unknown]
  - Suicidal ideation [Recovered/Resolved]
  - Gallbladder operation [Unknown]
  - Feeling abnormal [Unknown]
  - Product quality issue [Unknown]
  - Paranoia [Unknown]
  - Adverse event [Not Recovered/Not Resolved]

NARRATIVE: CASE EVENT DATE: 2016
